FAERS Safety Report 21506827 (Version 1)
Quarter: 2022Q4

REPORT INFORMATION
  Report Type: Spontaneous
  Country: US (occurrence: US)
  Receive Date: 20221026
  Receipt Date: 20221026
  Transmission Date: 20230113
  Serious: No
  Sender: FDA-Public Use
  Company Number: US-SA-SAC20221019001433

PATIENT
  Age: 64 Year
  Sex: Male

DRUGS (5)
  1. KEVZARA [Suspect]
     Active Substance: SARILUMAB
     Indication: Rheumatoid arthritis
     Dosage: 200 MG, QOW
     Route: 058
  2. FENTANYL [Concomitant]
     Active Substance: FENTANYL
  3. BLEPH-10 [Concomitant]
     Active Substance: SULFACETAMIDE SODIUM
  4. CIPRO C FORTE [Concomitant]
  5. UNSPECIFIED INGREDIENT [Concomitant]
     Active Substance: UNSPECIFIED INGREDIENT

REACTIONS (3)
  - Vomiting [Unknown]
  - Pyrexia [Unknown]
  - Illness [Unknown]
